FAERS Safety Report 9834535 (Version 3)
Quarter: 2014Q1

REPORT INFORMATION
  Report Type: Report from Study
  Country: FR (occurrence: FR)
  Receive Date: 20140122
  Receipt Date: 20140214
  Transmission Date: 20141002
  Serious: Yes (Hospitalization, Other)
  Sender: FDA-Public Use
  Company Number: FR-CELGENEUS-056-POMAL-14012768

PATIENT
  Age: 68 Year
  Sex: Male
  Weight: 64 kg

DRUGS (20)
  1. IMNOVID [Suspect]
     Indication: PLASMA CELL MYELOMA
     Dosage: 4 MILLIGRAM
     Route: 048
     Dates: start: 20131222, end: 20140102
  2. IMNOVID [Suspect]
     Dosage: 4 MILLIGRAM
     Route: 048
     Dates: start: 20140120
  3. DEXAMETHASONE [Suspect]
     Indication: PLASMA CELL MYELOMA
     Route: 065
     Dates: start: 20131222, end: 20131229
  4. DEXAMETHASONE [Suspect]
     Route: 065
  5. OXYCONTIN [Concomitant]
     Indication: PAIN
     Dosage: 40 MILLIGRAM
     Route: 065
  6. OXYCONTIN [Concomitant]
     Route: 065
  7. BACTRIM FORTE [Concomitant]
     Indication: PRODUCT USED FOR UNKNOWN INDICATION
     Route: 065
  8. FORLAX [Concomitant]
     Indication: PRODUCT USED FOR UNKNOWN INDICATION
     Dosage: 3 OTHER
     Route: 065
  9. NEXIUM [Concomitant]
     Indication: PRODUCT USED FOR UNKNOWN INDICATION
     Dosage: 20 OTHER
     Route: 065
  10. LYRICA [Concomitant]
     Indication: NEUROPATHY PERIPHERAL
     Dosage: 75 OTHER
     Route: 065
  11. LYRICA [Concomitant]
     Dosage: 200 OTHER
     Route: 065
  12. ZELITREX [Concomitant]
     Indication: PRODUCT USED FOR UNKNOWN INDICATION
     Dosage: 1000 OTHER
     Route: 065
  13. XANAX [Concomitant]
     Indication: PRODUCT USED FOR UNKNOWN INDICATION
     Dosage: .25 MILLIGRAM
     Route: 065
  14. AMLOR [Concomitant]
     Indication: PRODUCT USED FOR UNKNOWN INDICATION
     Dosage: 5 MILLIGRAM
     Route: 065
  15. TAHOR [Concomitant]
     Indication: PRODUCT USED FOR UNKNOWN INDICATION
     Dosage: 40 MILLIGRAM
     Route: 065
  16. VITAMIN B1 B6 [Concomitant]
     Indication: NEUROPATHY PERIPHERAL
     Dosage: 2 OTHER
     Route: 065
  17. ZOMETA [Concomitant]
     Indication: PRODUCT USED FOR UNKNOWN INDICATION
     Route: 065
  18. NEURONTIN [Concomitant]
     Indication: NEUROPATHY PERIPHERAL
     Route: 065
  19. NEURONTIN [Concomitant]
     Dosage: 200 OTHER
     Route: 065
  20. ASPIRINE [Concomitant]
     Indication: PROPHYLAXIS
     Route: 065

REACTIONS (2)
  - Acute coronary syndrome [Not Recovered/Not Resolved]
  - Arterial thrombosis [Not Recovered/Not Resolved]
